FAERS Safety Report 5790068-2 (Version None)
Quarter: 2008Q2

REPORT INFORMATION
  Report Type: 
  Country: None (occurrence: None)
  Receive Date: 20080626
  Receipt Date: 20080411
  Transmission Date: 20081010
  Serious: No
  Sender: FDA-Public Use
  Company Number: A0669908A

PATIENT
  Age: 67 Year
  Sex: Male

DRUGS (1)
  1. ALLI [Suspect]
     Dates: start: 20070615

REACTIONS (5)
  - CONSTIPATION [None]
  - DEFAECATION URGENCY [None]
  - FLATULENCE [None]
  - FREQUENT BOWEL MOVEMENTS [None]
  - RECTAL DISCHARGE [None]
